FAERS Safety Report 8534095-0 (Version None)
Quarter: 2012Q3

REPORT INFORMATION
  Report Type: 
  Country: None (occurrence: None)
  Receive Date: 20120724
  Receipt Date: 20120716
  Transmission Date: 20120928
  Serious: Yes (Hospitalization)
  Sender: FDA-Public Use
  Company Number: US-BAYER-2012-072949

PATIENT
  Age: 23 Year
  Sex: Female
  Weight: 90.703 kg

DRUGS (5)
  1. DIFLUCAN [Concomitant]
     Dosage: 150 MG, UNK
  2. METRONIDAZOLE [Concomitant]
     Dosage: 500 MG, UNK
  3. LORATADINE [Concomitant]
     Dosage: 10 MG, UNK
  4. BEYAZ [Suspect]
     Indication: MENORRHAGIA
     Dosage: UNK
     Dates: start: 20110805, end: 20110911
  5. MONISTAT 3 [Concomitant]
     Indication: FUNGAL INFECTION

REACTIONS (1)
  - PULMONARY EMBOLISM [None]
